FAERS Safety Report 15549802 (Version 1)
Quarter: 2018Q4

REPORT INFORMATION
  Report Type: Spontaneous
  Country: US (occurrence: US)
  Receive Date: 20181025
  Receipt Date: 20181025
  Transmission Date: 20190205
  Serious: No
  Sender: FDA-Public Use
  Company Number: US-BAYER-2018-198295

PATIENT
  Age: 57 Year
  Sex: Female

DRUGS (2)
  1. GADAVIST [Suspect]
     Active Substance: GADOBUTROL
     Indication: NUCLEAR MAGNETIC RESONANCE IMAGING BRAIN
  2. GADAVIST [Suspect]
     Active Substance: GADOBUTROL
     Indication: FACIAL PARALYSIS
     Dosage: UNK, ONCE
     Route: 042
     Dates: start: 20181022, end: 20181022

REACTIONS (1)
  - Pruritus [None]

NARRATIVE: CASE EVENT DATE: 20181022
